FAERS Safety Report 5868841-1 (Version None)
Quarter: 2008Q3

REPORT INFORMATION
  Report Type: 
  Country: None (occurrence: None)
  Receive Date: 20080902
  Receipt Date: 20080902
  Transmission Date: 20090109
  Serious: Yes (Other)
  Sender: FDA-Public Use
  Company Number: None

PATIENT
  Age: 29 Year
  Sex: Female
  Weight: 63.5036 kg

DRUGS (1)
  1. ORTHO EVRA ORTHO-MICNEIL [Suspect]
     Dosage: 1 PATCH WEEKLY TRANSDERMAL
     Route: 062
     Dates: start: 20080818, end: 20080822

REACTIONS (5)
  - APPLICATION SITE PRURITUS [None]
  - APPLICATION SITE RASH [None]
  - APPLICATION SITE SCAR [None]
  - DERMATITIS CONTACT [None]
  - DRUG HYPERSENSITIVITY [None]
